FAERS Safety Report 14006384 (Version 2)
Quarter: 2017Q4

REPORT INFORMATION
  Report Type: Spontaneous
  Country: US (occurrence: US)
  Receive Date: 20170925
  Receipt Date: 20171031
  Transmission Date: 20180321
  Serious: Yes (Hospitalization)
  Sender: FDA-Public Use
  Company Number: US-BEH-2017083697

PATIENT
  Sex: Female
  Weight: 40 kg

DRUGS (31)
  1. ZOFRAN [Concomitant]
     Active Substance: ONDANSETRON HYDROCHLORIDE
  2. ATROVENT [Concomitant]
     Active Substance: IPRATROPIUM BROMIDE
  3. BACLOFEN. [Concomitant]
     Active Substance: BACLOFEN
  4. ZINCATE [Concomitant]
  5. VITAMIN C [Concomitant]
     Active Substance: ASCORBIC ACID
  6. PREVACID [Concomitant]
     Active Substance: LANSOPRAZOLE
  7. HIZENTRA [Suspect]
     Active Substance: HUMAN IMMUNOGLOBULIN G
     Dosage: UNK
     Route: 058
  8. TIZANIDINE. [Concomitant]
     Active Substance: TIZANIDINE
  9. MELATONIN [Concomitant]
     Active Substance: MELATONIN
  10. OXYCODONE [Concomitant]
     Active Substance: OXYCODONE
  11. VITAMIN D3 [Concomitant]
     Active Substance: CHOLECALCIFEROL
  12. PROAIR HFA [Concomitant]
     Active Substance: ALBUTEROL SULFATE
  13. AMLODIPINE [Concomitant]
     Active Substance: AMLODIPINE BESYLATE
  14. KEPPRA [Concomitant]
     Active Substance: LEVETIRACETAM
  15. OXYTROL [Concomitant]
     Active Substance: OXYBUTYNIN
  16. DIPHENHYDRAMINE. [Concomitant]
     Active Substance: DIPHENHYDRAMINE
  17. ALBUTEROL                          /00139501/ [Concomitant]
     Active Substance: ALBUTEROL
  18. CALCIUM CITRATE [Concomitant]
     Active Substance: CALCIUM CITRATE
  19. CLONAZEPAM. [Concomitant]
     Active Substance: CLONAZEPAM
  20. HIZENTRA [Suspect]
     Active Substance: HUMAN IMMUNOGLOBULIN G
     Indication: IMMUNODEFICIENCY
     Dosage: 6 G, UNK
     Route: 058
     Dates: start: 20110207
  21. PRIMIDONE. [Concomitant]
     Active Substance: PRIMIDONE
  22. SODIUM ACID CITRATE [Concomitant]
  23. NYSTATIN. [Concomitant]
     Active Substance: NYSTATIN
  24. OXYBUTYNIN. [Concomitant]
     Active Substance: OXYBUTYNIN CHLORIDE
  25. NITROFURANTOIN. [Concomitant]
     Active Substance: NITROFURANTOIN
  26. CLONIDINE. [Concomitant]
     Active Substance: CLONIDINE
  27. MULTIPLE VITAMINS [Concomitant]
     Active Substance: VITAMINS
  28. ROBINUL [Concomitant]
     Active Substance: GLYCOPYRROLATE
  29. DOXYCYCLINE. [Concomitant]
     Active Substance: DOXYCYCLINE
  30. SALINE                             /00075401/ [Concomitant]
     Active Substance: SODIUM CHLORIDE
  31. SINGULAIR [Concomitant]
     Active Substance: MONTELUKAST SODIUM

REACTIONS (3)
  - Pulmonary embolism [Unknown]
  - Vena cava embolism [Unknown]
  - Tracheobronchitis [Unknown]
